FAERS Safety Report 6950632-1 (Version None)
Quarter: 2010Q3

REPORT INFORMATION
  Report Type: 
  Country: None (occurrence: None)
  Receive Date: 20100828
  Receipt Date: 20100222
  Transmission Date: 20110219
  Serious: No
  Sender: FDA-Public Use
  Company Number: US-ABBOTT-10P-163-0627883-00

PATIENT
  Sex: Male
  Weight: 72.64 kg

DRUGS (6)
  1. NIASPAN [Suspect]
     Indication: BLOOD CHOLESTEROL INCREASED
     Dosage: EVERY BEDTIME
     Dates: start: 20100219, end: 20100220
  2. ASPIRIN [Concomitant]
     Indication: PRODUCT USED FOR UNKNOWN INDICATION
  3. LOVAZA [Concomitant]
     Indication: PRODUCT USED FOR UNKNOWN INDICATION
  4. UNKNOWN MEDICATIONS [Concomitant]
     Indication: PANIC ATTACK
     Dates: end: 20100201
  5. UNKNOWN MEDICATIONS [Concomitant]
     Indication: PROPHYLAXIS
  6. UNKNOWN MEDICATIONS [Concomitant]
     Indication: DEPRESSION

REACTIONS (5)
  - AGITATION [None]
  - FLUSHING [None]
  - INSOMNIA [None]
  - PSYCHOMOTOR HYPERACTIVITY [None]
  - TINNITUS [None]
